FAERS Safety Report 24887201 (Version 2)
Quarter: 2025Q2

REPORT INFORMATION
  Report Type: Spontaneous
  Country: JP (occurrence: JP)
  Receive Date: 20250127
  Receipt Date: 20250403
  Transmission Date: 20250717
  Serious: Yes (Other)
  Sender: GENMAB
  Company Number: JP-GENMAB-2024-02839

PATIENT
  Age: 75 Year
  Sex: Male

DRUGS (2)
  1. EPKINLY [Suspect]
     Active Substance: EPCORITAMAB-BYSP
     Indication: Diffuse large B-cell lymphoma
     Route: 058
     Dates: start: 2024
  2. PREDNISOLONE [Concomitant]
     Active Substance: PREDNISOLONE
     Indication: Prophylaxis
     Dates: start: 2024

REACTIONS (6)
  - Diffuse large B-cell lymphoma [Unknown]
  - Cytokine release syndrome [Unknown]
  - Pneumonia [Unknown]
  - Sinusitis [Unknown]
  - COVID-19 [Unknown]
  - Platelet count decreased [Unknown]

NARRATIVE: CASE EVENT DATE: 20240101
